FAERS Safety Report 4591971-1 (Version None)
Quarter: 2005Q1

REPORT INFORMATION
  Report Type: 
  Country: None (occurrence: None)
  Receive Date: 20050125
  Receipt Date: 20040928
  Transmission Date: 20050727
  Serious: No
  Sender: FDA-Public Use
  Company Number: USA040875068

PATIENT
  Age: 60 Year
  Sex: Female
  Weight: 63 kg

DRUGS (2)
  1. FORTEO [Suspect]
     Indication: OSTEOPOROSIS
     Dosage: 20 UG DAY
     Dates: start: 20040806
  2. CALCIUM PLUS D [Concomitant]

REACTIONS (10)
  - ACCIDENTAL OVERDOSE [None]
  - BLOOD BLISTER [None]
  - CONTUSION [None]
  - INJECTION SITE ERYTHEMA [None]
  - MEDICATION ERROR [None]
  - PAIN IN EXTREMITY [None]
  - PYREXIA [None]
  - SINUSITIS [None]
  - SKIN TIGHTNESS [None]
  - VASODILATATION [None]
